FAERS Safety Report 4416945-2 (Version None)
Quarter: 2004Q3

REPORT INFORMATION
  Report Type: 
  Country: None (occurrence: None)
  Receive Date: 20040806
  Receipt Date: 20040806
  Transmission Date: 20050211
  Serious: No
  Sender: FDA-Public Use
  Company Number: None

PATIENT
  Age: 76 Year
  Sex: Male
  Weight: 95.709 kg

DRUGS (2)
  1. CRESTOR [Suspect]
     Indication: CORONARY ARTERIAL STENT INSERTION
     Dosage: 10 MG, QD, PO
     Route: 048
     Dates: start: 20040526, end: 20040802
  2. CRESTOR [Suspect]
     Indication: CORONARY ARTERY DISEASE
     Dosage: 10 MG, QD, PO
     Route: 048
     Dates: start: 20040526, end: 20040802

REACTIONS (9)
  - CHROMATURIA [None]
  - CONSTIPATION [None]
  - JAUNDICE [None]
  - MALAISE [None]
  - MUSCULAR WEAKNESS [None]
  - MYALGIA [None]
  - NAUSEA [None]
  - PRURITUS [None]
  - VOMITING [None]
